FAERS Safety Report 8367859-7 (Version None)
Quarter: 2012Q2

REPORT INFORMATION
  Report Type: 
  Country: None (occurrence: None)
  Receive Date: 20120517
  Receipt Date: 20120509
  Transmission Date: 20120825
  Serious: Yes (Other)
  Sender: FDA-Public Use
  Company Number: PHHY2012US041120

PATIENT
  Age: 25 Year
  Sex: Male

DRUGS (5)
  1. MYCOPHENOLATE MOFETIL [Concomitant]
     Indication: PROPHYLAXIS AGAINST GRAFT VERSUS HOST DISEASE
     Dosage: 1000 MG, TID
  2. CYCLOPHOSPHAMIDE [Concomitant]
     Dosage: 2000 MG/M2
  3. CYCLOSPORINE [Suspect]
     Indication: PROPHYLAXIS AGAINST GRAFT VERSUS HOST DISEASE
     Dosage: UNK UKN, UNK
  4. ALEMTUZUMAB [Concomitant]
     Dosage: 100 MG, UNK
  5. FLUDARABINE PHOSPHATE [Concomitant]
     Dosage: 120 MG/M2

REACTIONS (7)
  - WHITE BLOOD CELL COUNT DECREASED [None]
  - TRANSFUSION MICROCHIMERISM [None]
  - BONE MARROW FAILURE [None]
  - NEUTROPENIA [None]
  - CHRONIC GRAFT VERSUS HOST DISEASE [None]
  - HUMAN POLYOMAVIRUS INFECTION [None]
  - CYSTITIS VIRAL [None]
